FAERS Safety Report 20372501 (Version 5)
Quarter: 2022Q1

REPORT INFORMATION
  Report Type: Spontaneous
  Country: US (occurrence: US)
  Receive Date: 20220125
  Receipt Date: 20220321
  Transmission Date: 20220423
  Serious: Yes (Hospitalization, Other)
  Sender: FDA-Public Use
  Company Number: US-BIOVITRUM-2022US00963

PATIENT
  Age: 0 Year
  Sex: Male
  Weight: 5 kg

DRUGS (26)
  1. SYNAGIS [Suspect]
     Active Substance: PALIVIZUMAB
     Indication: Antiviral prophylaxis
     Route: 030
     Dates: start: 202108
  2. FLOVENT [Concomitant]
     Active Substance: FLUTICASONE PROPIONATE
     Dosage: 100 MCG BLST W/DEV
  3. FUROSEMIDE [Concomitant]
     Active Substance: FUROSEMIDE
     Dosage: 10 MG/ML SOLUTION
  4. ZYRTEC-D [Concomitant]
     Active Substance: CETIRIZINE HYDROCHLORIDE\PSEUDOEPHEDRINE HYDROCHLORIDE
     Dosage: 5 MG 120MG TAB.SR 12H
  5. FAMOTIDINE [Concomitant]
     Active Substance: FAMOTIDINE
     Dosage: VIAL
  6. ATROVENT HFA [Concomitant]
     Active Substance: IPRATROPIUM BROMIDE
     Dosage: 17 MCG HFA AER AD
  7. XOPENEX [Concomitant]
     Active Substance: LEVALBUTEROL HYDROCHLORIDE
     Dosage: 0.31MG/3ML VIAL NEB
  8. POLYVISOL [Concomitant]
     Dosage: 250-50/ML DROPS
  9. VITAMIN D3 [Concomitant]
     Active Substance: CHOLECALCIFEROL
     Dosage: 10(400)/ML DROPS
  10. OMEPRAZOLE [Concomitant]
     Active Substance: OMEPRAZOLE
     Dosage: 10 MG CAPSULE DR
  11. ADEMPAS [Concomitant]
     Active Substance: RIOCIGUAT
  12. REMODULIN [Concomitant]
     Active Substance: TREPROSTINIL
     Dosage: 10 MG/ML VIAL
  13. DOJOLVI [Concomitant]
     Active Substance: TRIHEPTANOIN
     Dosage: 8.3KCAL/ML LIQUID
  14. FLOVENT HFA [Concomitant]
     Active Substance: FLUTICASONE PROPIONATE
     Dosage: 110 MCG AER W/ADAP
  15. PEPCID [Concomitant]
     Active Substance: FAMOTIDINE
  16. ZYRTEC [Concomitant]
     Active Substance: CETIRIZINE HYDROCHLORIDE
  17. BOSENTAN [Concomitant]
     Active Substance: BOSENTAN
  18. EPINEPHRINE [Concomitant]
     Active Substance: EPINEPHRINE
  19. SYNAGIS [Suspect]
     Active Substance: PALIVIZUMAB
     Indication: Long-chain acyl-coenzyme A dehydrogenase deficiency
  20. SYNAGIS [Suspect]
     Active Substance: PALIVIZUMAB
     Indication: Low birth weight baby
  21. SYNAGIS [Suspect]
     Active Substance: PALIVIZUMAB
     Indication: Hypoxia
  22. SYNAGIS [Suspect]
     Active Substance: PALIVIZUMAB
     Indication: Premature baby
  23. SYNAGIS [Suspect]
     Active Substance: PALIVIZUMAB
     Indication: Pulmonary arterial hypertension
  24. SYNAGIS [Suspect]
     Active Substance: PALIVIZUMAB
     Indication: Pulmonary hypertension
  25. SYNAGIS [Suspect]
     Active Substance: PALIVIZUMAB
     Indication: Metabolic disorder
  26. TRACLEER [Concomitant]
     Active Substance: BOSENTAN

REACTIONS (8)
  - COVID-19 [Not Recovered/Not Resolved]
  - Rhinovirus infection [Not Recovered/Not Resolved]
  - Pneumonia [Not Recovered/Not Resolved]
  - Pulmonary hypertension [Unknown]
  - Pyrexia [Unknown]
  - Lung disorder [Not Recovered/Not Resolved]
  - Reflux gastritis [Unknown]
  - Retching [Unknown]

NARRATIVE: CASE EVENT DATE: 20220112
